FAERS Safety Report 6297142-5 (Version None)
Quarter: 2009Q3

REPORT INFORMATION
  Report Type: 
  Country: None (occurrence: None)
  Receive Date: 20090724
  Receipt Date: 20090520
  Transmission Date: 20100115
  Serious: Yes (Other)
  Sender: FDA-Public Use
  Company Number: 2008BI028992

PATIENT
  Age: 61 Year
  Sex: Male

DRUGS (4)
  1. TYSABRI [Suspect]
     Indication: MULTIPLE SCLEROSIS
     Dosage: 300 MG;QM;IV
     Route: 042
     Dates: start: 20080616
  2. CYMBALTA [Concomitant]
  3. AVONEX [Concomitant]
  4. COPAXONE [Concomitant]

REACTIONS (9)
  - ASTHMA [None]
  - CARDIAC FAILURE CONGESTIVE [None]
  - HEADACHE [None]
  - HYPERTENSION [None]
  - MUSCLE SPASMS [None]
  - NAUSEA [None]
  - PAIN IN EXTREMITY [None]
  - RASH [None]
  - WEIGHT DECREASED [None]
